FAERS Safety Report 6143445-4 (Version None)
Quarter: 2009Q2

REPORT INFORMATION
  Report Type: 
  Country: None (occurrence: None)
  Receive Date: 20090401
  Receipt Date: 20090324
  Transmission Date: 20091009
  Serious: Yes (Other)
  Sender: FDA-Public Use
  Company Number: 2006S1000215

PATIENT
  Age: 65 Year
  Sex: Male

DRUGS (5)
  1. CUBICIN [Suspect]
     Indication: PACEMAKER COMPLICATION
     Dates: start: 20051014, end: 20051028
  2. CUBICIN [Suspect]
     Indication: STAPHYLOCOCCAL INFECTION
     Dates: start: 20051014, end: 20051028
  3. VANCOMYCIN HCL [Concomitant]
  4. GENTAMICIN [Concomitant]
  5. RIFAMPIN [Concomitant]

REACTIONS (4)
  - ANTIMICROBIAL SUSCEPTIBILITY TEST RESISTANT [None]
  - ENDOCARDITIS STAPHYLOCOCCAL [None]
  - STAPHYLOCOCCAL BACTERAEMIA [None]
  - STAPHYLOCOCCAL INFECTION [None]
